FAERS Safety Report 24324815 (Version 1)
Quarter: 2024Q3

REPORT INFORMATION
  Report Type: Spontaneous
  Country: US (occurrence: US)
  Receive Date: 20240916
  Receipt Date: 20240916
  Transmission Date: 20241016
  Serious: No
  Sender: PAREXEL
  Company Number: US-Stemline Therapeutics, Inc.-2024ST002991

PATIENT
  Age: 55 Year
  Sex: Female

DRUGS (1)
  1. ORSERDU [Suspect]
     Active Substance: ELACESTRANT
     Indication: Product used for unknown indication
     Dates: start: 20240506

REACTIONS (12)
  - Bone neoplasm [Unknown]
  - Chills [Unknown]
  - Norovirus infection [Unknown]
  - Dry skin [Unknown]
  - Lip dry [Unknown]
  - Dry mouth [Unknown]
  - Skin discolouration [Unknown]
  - Dry eye [Unknown]
  - Nausea [Not Recovered/Not Resolved]
  - Vomiting [Unknown]
  - Headache [Not Recovered/Not Resolved]
  - Pruritus [Unknown]

NARRATIVE: CASE EVENT DATE: 20240101
